FAERS Safety Report 18980362 (Version 1)
Quarter: 2021Q1

REPORT INFORMATION
  Report Type: Spontaneous
  Country: IN (occurrence: IN)
  Receive Date: 20210308
  Receipt Date: 20210308
  Transmission Date: 20210420
  Serious: Yes (Hospitalization)
  Sender: FDA-Public Use
  Company Number: IN-MYLANLABS-2021M1013921

PATIENT
  Age: 48 Year
  Sex: Female

DRUGS (2)
  1. CISPLATIN. [Suspect]
     Active Substance: CISPLATIN
     Indication: HYPERTHERMIC CHEMOTHERAPY
     Dosage: CISPLATIN IN 2L OF SODIUM...
     Route: 033
  2. NORMAL SALINE [Concomitant]
     Active Substance: SODIUM CHLORIDE
     Indication: HYPERTHERMIC CHEMOTHERAPY
     Dosage: CISPLATIN IN 2L OF SODIUM...
     Route: 033

REACTIONS (2)
  - Enterocutaneous fistula [Recovering/Resolving]
  - Large intestine perforation [Recovering/Resolving]
